FAERS Safety Report 6517095-1 (Version None)
Quarter: 2009Q4

REPORT INFORMATION
  Report Type: 
  Country: None (occurrence: None)
  Receive Date: 20091223
  Receipt Date: 20091217
  Transmission Date: 20100525
  Serious: Yes (Other)
  Sender: FDA-Public Use
  Company Number: B0604874A

PATIENT
  Sex: Male

DRUGS (5)
  1. RELENZA [Suspect]
     Indication: INFLUENZA
     Dosage: 10MG TWICE PER DAY
     Route: 055
     Dates: start: 20091110, end: 20091111
  2. ASTOMIN [Concomitant]
     Indication: COUGH
     Dosage: 20MG THREE TIMES PER DAY
     Route: 048
     Dates: start: 20091110, end: 20091116
  3. CALONAL [Concomitant]
     Route: 065
  4. GLUCOSE [Concomitant]
     Indication: DECREASED APPETITE
     Dosage: 20ML PER DAY
     Route: 065
     Dates: start: 20091110, end: 20091110
  5. THIAMINE [Concomitant]
     Indication: DECREASED APPETITE
     Dosage: 2ML PER DAY
     Dates: start: 20091110, end: 20091111

REACTIONS (4)
  - ABNORMAL BEHAVIOUR [None]
  - AGGRESSION [None]
  - NO THERAPEUTIC RESPONSE [None]
  - SOMNOLENCE [None]
